FAERS Safety Report 10452012 (Version 1)
Quarter: 2014Q3

REPORT INFORMATION
  Report Type: Spontaneous
  Country: US (occurrence: US)
  Receive Date: 20140915
  Receipt Date: 20140915
  Transmission Date: 20150326
  Serious: No
  Sender: FDA-Public Use
  Company Number: US-SHIRE-US201405739

PATIENT
  Age: 29 Year
  Sex: Male
  Weight: 79.37 kg

DRUGS (2)
  1. VYVANSE [Suspect]
     Active Substance: LISDEXAMFETAMINE DIMESYLATE
     Indication: ATTENTION DEFICIT/HYPERACTIVITY DISORDER
     Dosage: 20 MG, 1X/DAY:QD
     Route: 048
     Dates: start: 20140826
  2. VYVANSE [Suspect]
     Active Substance: LISDEXAMFETAMINE DIMESYLATE
     Dosage: UNK UNK (POUR 20 MG CAPSULE CONTENTS IN WATER AND DRINK HALF), 1X/DAY:QD
     Route: 048
     Dates: start: 201409, end: 201409

REACTIONS (7)
  - Nonspecific reaction [Unknown]
  - Performance status decreased [Unknown]
  - Frustration [Unknown]
  - Energy increased [Unknown]
  - Drug prescribing error [Recovered/Resolved]
  - Insomnia [Not Recovered/Not Resolved]
  - Initial insomnia [Unknown]

NARRATIVE: CASE EVENT DATE: 2014
